FAERS Safety Report 24970056 (Version 1)
Quarter: 2025Q1

REPORT INFORMATION
  Report Type: Spontaneous
  Country: US (occurrence: None)
  Receive Date: 20250213
  Receipt Date: 20250213
  Transmission Date: 20250408
  Serious: No
  Sender: FDA-CTU
  Company Number: None

PATIENT
  Sex: Female
  Weight: 65.25 kg

DRUGS (1)
  1. MOUNJARO [Suspect]
     Active Substance: TIRZEPATIDE

REACTIONS (11)
  - Binge eating [None]
  - Depression [None]
  - Depressed mood [None]
  - Feeling of despair [None]
  - Affective disorder [None]
  - Anger [None]
  - Vomiting [None]
  - Diarrhoea [None]
  - Constipation [None]
  - Flatulence [None]
  - Dumping syndrome [None]
